FAERS Safety Report 9735329 (Version 1)
Quarter: 2013Q4

REPORT INFORMATION
  Report Type: Spontaneous
  Country: FR (occurrence: None)
  Receive Date: 20131204
  Receipt Date: 20131204
  Transmission Date: 20140711
  Serious: Yes (Death)
  Sender: FDA-Public Use
  Company Number: DSM-2013-01128

PATIENT
  Age: 71 Year
  Sex: Male

DRUGS (11)
  1. ALTEIS (OLMESARTAN MEDOXOMIL) (TABLET) (OLMESARTAN MEDOXOMIL) [Suspect]
     Indication: PRODUCT USED FOR UNKNOWN INDICATION
     Dosage: ORAL
     Route: 048
  2. BACLOFEN (BACLOFEN) (BACLOFEN) [Suspect]
     Indication: PRODUCT USED FOR UNKNOWN INDICATION
     Dosage: 12 DOSAGE FORMS (1DOSAGE FORMS, 3 IN 6 HR), ORAL
     Route: 048
  3. PLAVIX (CLOPIDOGREL SULFATE) [Suspect]
     Indication: PRODUCT USED FOR UNKNOWN INDICATION
     Dosage: ORAL
     Route: 048
  4. ADANCOR [Suspect]
     Indication: PRODUCT USED FOR UNKNOWN INDICATION
     Dosage: ORAL
     Route: 048
  5. ALLOPURINOL (ALLOPURINOL) (ALLOPURINOL) [Suspect]
     Indication: PRODUCT USED FOR UNKNOWN INDICATION
     Dosage: ORAL
     Route: 048
  6. BI TILDIEM [Suspect]
     Indication: PRODUCT USED FOR UNKNOWN INDICATION
     Dosage: ORAL
     Route: 048
  7. TAHOR (ATORVASTATIN CALCIUM) [Suspect]
     Indication: PRODUCT USED FOR UNKNOWN INDICATION
     Dosage: ORAL
     Route: 048
  8. INEXIUM (ESOMEPRAZOLE MAGNESIUM) (ESOMEPRAZOLE MAGNESIUM) [Suspect]
     Indication: PRODUCT USED FOR UNKNOWN INDICATION
     Dosage: ORAL
     Route: 048
  9. ZOPICLONE [Suspect]
     Indication: PRODUCT USED FOR UNKNOWN INDICATION
     Dosage: ORAL
     Route: 048
  10. NITRIDERM [Suspect]
     Indication: PRODUCT USED FOR UNKNOWN INDICATION
     Dosage: TRANSDERMAL
     Route: 062
  11. POZACH [Suspect]
     Indication: PRODUCT USED FOR UNKNOWN INDICATION
     Dosage: ORAL
     Route: 048

REACTIONS (1)
  - Sudden death [None]
